FAERS Safety Report 8919877 (Version 2)
Quarter: 2012Q4

REPORT INFORMATION
  Report Type: 
  Country: US (occurrence: US)
  Receive Date: 20121121
  Receipt Date: 20121128
  Transmission Date: 20130627
  Serious: Yes (Other)
  Sender: FDA-Public Use
  Company Number: US-PFIZER INC-2012290623

PATIENT
  Age: 87 Year
  Sex: Female
  Weight: 39 kg

DRUGS (5)
  1. LIPITOR [Suspect]
     Dosage: UNK
  2. ACCUPRIL [Suspect]
     Dosage: UNK
  3. NORVASC [Suspect]
     Dosage: UNK
  4. TOPROL XL [Concomitant]
     Dosage: 100 mg
  5. TRIAMTERENE [Concomitant]
     Dosage: once a day

REACTIONS (2)
  - Ocular neoplasm [Unknown]
  - Blindness [Unknown]
